FAERS Safety Report 11888595 (Version 1)
Quarter: 2016Q1

REPORT INFORMATION
  Report Type: Spontaneous
  Country: US (occurrence: None)
  Receive Date: 20160104
  Receipt Date: 20160104
  Transmission Date: 20160526
  Serious: No
  Sender: FDA-Public Use
  Company Number: None

PATIENT
  Age: 57 Year
  Sex: Female
  Weight: 81.65 kg

DRUGS (1)
  1. VICTOZA [Suspect]
     Active Substance: LIRAGLUTIDE
     Indication: DIABETES MELLITUS
     Dosage: 4-6 MONTHS?5-6 UNITS?GIVEN INTO/UNDER THE SKINL

REACTIONS (5)
  - Osteoarthritis [None]
  - Condition aggravated [None]
  - Rheumatoid factor increased [None]
  - Benign neoplasm [None]
  - Arthralgia [None]

NARRATIVE: CASE EVENT DATE: 20150802
